FAERS Safety Report 9247663 (Version 3)
Quarter: 2013Q2

REPORT INFORMATION
  Report Type: Spontaneous
  Country: US (occurrence: US)
  Receive Date: 20130423
  Receipt Date: 20130610
  Transmission Date: 20140414
  Serious: Yes (Other)
  Sender: FDA-Public Use
  Company Number: US-PFIZER INC-2013122833

PATIENT
  Age: 33 Year
  Sex: Male
  Weight: 65.31 kg

DRUGS (3)
  1. VFEND [Suspect]
     Indication: MENINGITIS FUNGAL
     Dosage: 400 MG (2 TABLETS OF 200MG IN THE MORNING + 2 TABLETS OF 200MG IN THE EVENING), 2X/DAY
     Route: 048
     Dates: start: 201301, end: 201301
  2. VFEND [Suspect]
     Dosage: 3 TABLETS OF 200MG IN THE MORNING + 2 TABLETS OF 200MG IN THE EVENING
     Route: 048
     Dates: start: 201301
  3. VFEND [Suspect]
     Dosage: 200 MG, UNK
     Dates: start: 20130206

REACTIONS (6)
  - Condition aggravated [Unknown]
  - Incorrect dose administered [Unknown]
  - Amnesia [Unknown]
  - Nausea [Unknown]
  - Malaise [Unknown]
  - Mental disorder [Unknown]
